FAERS Safety Report 25679302 (Version 1)
Quarter: 2025Q3

REPORT INFORMATION
  Report Type: Spontaneous
  Country: CN (occurrence: CN)
  Receive Date: 20250814
  Receipt Date: 20250814
  Transmission Date: 20251021
  Serious: Yes (Other)
  Sender: ROCHE
  Company Number: CN-ROCHE-10000359645

PATIENT
  Age: 60 Year
  Sex: Female

DRUGS (10)
  1. TRASTUZUMAB [Suspect]
     Active Substance: TRASTUZUMAB
     Indication: Endometrial cancer
     Route: 042
     Dates: start: 20250715, end: 20250715
  2. CARBOPLATIN [Suspect]
     Active Substance: CARBOPLATIN
     Indication: Endometrial cancer
     Route: 042
     Dates: start: 20250716, end: 20250716
  3. PACLITAXEL [Suspect]
     Active Substance: PACLITAXEL
     Indication: Endometrial cancer
     Route: 042
     Dates: start: 20250716, end: 20250716
  4. DEXAMETHASONE SODIUM PHOSPHATE [Concomitant]
     Active Substance: DEXAMETHASONE SODIUM PHOSPHATE
     Route: 042
     Dates: start: 20250716, end: 20250716
  5. PANTOPRAZOLE SODIUM INJECTION [Concomitant]
     Indication: Muscle spasms
     Route: 042
     Dates: start: 20250716, end: 20250716
  6. PROMETHAZINE [Concomitant]
     Active Substance: PROMETHAZINE HYDROCHLORIDE
     Route: 030
     Dates: start: 20250716, end: 20250716
  7. ONDANSETRON HYDROCHLORIDE INJECTION [Concomitant]
     Route: 042
     Dates: start: 20250716, end: 20250716
  8. AVASTIN [Concomitant]
     Active Substance: BEVACIZUMAB
     Dates: start: 20250803
  9. DOCETAXEL [Concomitant]
     Active Substance: DOCETAXEL
  10. CISPLATIN [Concomitant]
     Active Substance: CISPLATIN

REACTIONS (2)
  - Myelosuppression [Not Recovered/Not Resolved]
  - Off label use [Unknown]

NARRATIVE: CASE EVENT DATE: 20250728
